FAERS Safety Report 5992086-8 (Version None)
Quarter: 2008Q4

REPORT INFORMATION
  Report Type: 
  Country: None (occurrence: None)
  Receive Date: 20081211
  Receipt Date: 20081202
  Transmission Date: 20090506
  Serious: Yes (Other)
  Sender: FDA-Public Use
  Company Number: DE-WYE-H07142108

PATIENT
  Sex: Male
  Weight: 46 kg

DRUGS (1)
  1. CORDAREX [Suspect]
     Indication: ARRHYTHMIA
     Dosage: UNKNOWN
     Route: 048
     Dates: start: 20060401, end: 20070101

REACTIONS (3)
  - ABDOMINAL PAIN [None]
  - NAUSEA [None]
  - WEIGHT DECREASED [None]
